FAERS Safety Report 17330648 (Version 2)
Quarter: 2020Q1

REPORT INFORMATION
  Report Type: Spontaneous
  Country: US (occurrence: US)
  Receive Date: 20200128
  Receipt Date: 20200212
  Transmission Date: 20200409
  Serious: Yes (Life-Threatening, Hospitalization)
  Sender: FDA-Public Use
  Company Number: US-TEVA-2020-US-1175286

PATIENT
  Age: 7 Decade
  Sex: Female

DRUGS (2)
  1. PREDNISONE. [Suspect]
     Active Substance: PREDNISONE
     Indication: LUNG DISORDER
     Route: 065
  2. RITUXIMAB. [Concomitant]
     Active Substance: RITUXIMAB
     Indication: LUNG DISORDER
     Route: 065

REACTIONS (4)
  - Respiratory failure [Recovered/Resolved]
  - Pulmonary nodular lymphoid hyperplasia [Recovered/Resolved]
  - Withdrawal syndrome [Recovered/Resolved]
  - Acute respiratory distress syndrome [Recovered/Resolved]
